FAERS Safety Report 4422433-X (Version None)
Quarter: 2004Q3

REPORT INFORMATION
  Report Type: 
  Country: None (occurrence: None)
  Receive Date: 20040806
  Receipt Date: 20040719
  Transmission Date: 20050211
  Serious: Yes (Hospitalization, Other)
  Sender: FDA-Public Use
  Company Number: USA040772392

PATIENT
  Age: 56 Year
  Sex: Male
  Weight: 116 kg

DRUGS (4)
  1. HUMALOG [Suspect]
     Indication: DIABETES MELLITUS
     Dosage: 10 U DAY
  2. ACTOS [Concomitant]
  3. LANTUS [Concomitant]
  4. ATENOLOL [Concomitant]

REACTIONS (10)
  - ANKLE FRACTURE [None]
  - BACK INJURY [None]
  - BACK PAIN [None]
  - BLOOD GLUCOSE INCREASED [None]
  - CHEST PAIN [None]
  - DIZZINESS POSTURAL [None]
  - FALL [None]
  - HYPOTENSION [None]
  - POST PROCEDURAL COMPLICATION [None]
  - TRIPLE VESSEL BYPASS GRAFT [None]
